FAERS Safety Report 7906496-2 (Version None)
Quarter: 2011Q4

REPORT INFORMATION
  Report Type: 
  Country: None (occurrence: None)
  Receive Date: 20111110
  Receipt Date: 20111102
  Transmission Date: 20120403
  Serious: Yes (Hospitalization)
  Sender: FDA-Public Use
  Company Number: FR-JNJFOC-20111102933

PATIENT
  Sex: Male

DRUGS (5)
  1. DURAGESIC-100 [Suspect]
     Route: 062
     Dates: start: 20110910
  2. IMOVANE [Concomitant]
     Route: 065
  3. PLAVIX [Concomitant]
     Route: 065
  4. BISOPROLOL FUMARATE [Concomitant]
     Route: 065
  5. DURAGESIC-100 [Suspect]
     Indication: METASTASES TO BONE
     Dosage: 12.6MG/31.5CM^2
     Route: 062
     Dates: end: 20110910

REACTIONS (5)
  - DYSPNOEA [None]
  - CONSTIPATION [None]
  - DEHYDRATION [None]
  - URINARY RETENTION [None]
  - ABNORMAL BEHAVIOUR [None]
